FAERS Safety Report 6537031-1 (Version None)
Quarter: 2010Q1

REPORT INFORMATION
  Report Type: 
  Country: None (occurrence: None)
  Receive Date: 20100110
  Receipt Date: 20091209
  Transmission Date: 20100710
  Serious: Yes (Hospitalization)
  Sender: FDA-Public Use
  Company Number: 2010EN000005

PATIENT
  Age: 18 Year
  Sex: Male

DRUGS (6)
  1. ONCASPAR [Suspect]
     Indication: ACUTE LYMPHOCYTIC LEUKAEMIA
  2. PREDNISONE [Concomitant]
  3. VINCRISTINE [Concomitant]
  4. DAUNORUBICIN HCL [Concomitant]
  5. CYCLOPHOSPHAMIDE [Concomitant]
  6. 6-THIOOUANINE [Concomitant]

REACTIONS (6)
  - ASCITES [None]
  - HYPONATRAEMIA [None]
  - PANCREATIC PSEUDOCYST [None]
  - PANCREATITIS [None]
  - PLEURAL EFFUSION [None]
  - URINE OUTPUT DECREASED [None]
